FAERS Safety Report 7822758-1 (Version None)
Quarter: 2011Q4

REPORT INFORMATION
  Report Type: 
  Country: None (occurrence: None)
  Receive Date: 20111018
  Receipt Date: 20111005
  Transmission Date: 20120403
  Serious: Yes (Hospitalization)
  Sender: FDA-Public Use
  Company Number: TW-MYLANLABS-2011S1021199

PATIENT
  Age: 44 Year
  Sex: Female

DRUGS (1)
  1. METHIMAZOLE [Suspect]
     Indication: BASEDOW'S DISEASE
     Dosage: 30MG PER DAY
     Route: 065

REACTIONS (2)
  - HISTIOCYTOSIS HAEMATOPHAGIC [None]
  - AGRANULOCYTOSIS [None]
